FAERS Safety Report 24525071 (Version 1)
Quarter: 2024Q4

REPORT INFORMATION
  Report Type: Spontaneous
  Country: US (occurrence: US)
  Receive Date: 20241019
  Receipt Date: 20241019
  Transmission Date: 20250115
  Serious: No
  Sender: ABBVIE
  Company Number: US-ABBVIE-5959692

PATIENT
  Sex: Female

DRUGS (2)
  1. HUMIRA [Suspect]
     Active Substance: ADALIMUMAB
     Indication: Psoriasis
     Route: 058
  2. HUMIRA [Suspect]
     Active Substance: ADALIMUMAB
     Route: 058

REACTIONS (7)
  - Dry skin [Unknown]
  - Rash macular [Unknown]
  - Psoriasis [Unknown]
  - Peripheral swelling [Unknown]
  - Drug ineffective [Unknown]
  - Skin exfoliation [Unknown]
  - Allergy to metals [Unknown]
